FAERS Safety Report 4286346-9 (Version None)
Quarter: 2004Q1

REPORT INFORMATION
  Report Type: 
  Country: None (occurrence: None)
  Receive Date: 20040121
  Receipt Date: 20030214
  Transmission Date: 20041129
  Serious: Yes (Other)
  Sender: FDA-Public Use
  Company Number: A03200300325

PATIENT
  Age: 72 Year
  Sex: Female
  Weight: 79.8331 kg

DRUGS (7)
  1. PLAVIX [Suspect]
     Indication: CEREBROVASCULAR ACCIDENT
     Dosage: 75 MG QD - ORAL
     Route: 048
     Dates: start: 19991201, end: 20021101
  2. ACETYLSALICYLIC ACID SRT [Concomitant]
  3. DOXEPIN HYDROCHLORIDE [Concomitant]
  4. CIMETIDINE HCL [Concomitant]
  5. OXYBUTYNIN HYDROCHLORIDE [Concomitant]
  6. TAMOXIFEN CITRATE [Concomitant]
  7. THYROID TAB [Concomitant]

REACTIONS (3)
  - DYSPEPSIA [None]
  - GASTROINTESTINAL ULCER HAEMORRHAGE [None]
  - HAEMATOCHEZIA [None]
